FAERS Safety Report 9202202 (Version 1)
Quarter: 2013Q2

REPORT INFORMATION
  Report Type: Spontaneous
  Country: FR (occurrence: FR)
  Receive Date: 20130401
  Receipt Date: 20130401
  Transmission Date: 20140414
  Serious: Yes (Disabling)
  Sender: FDA-Public Use
  Company Number: FR-GLAXOSMITHKLINE-B0863455A

PATIENT
  Sex: Male
  Weight: 99 kg

DRUGS (4)
  1. AVODART [Suspect]
     Indication: BENIGN PROSTATIC HYPERPLASIA
     Dosage: .5MG PER DAY
     Route: 048
     Dates: start: 20110410, end: 20120515
  2. PLAVIX [Concomitant]
     Indication: CORONARY ARTERY DISEASE
     Route: 048
  3. DEROXAT [Concomitant]
     Dosage: .5TAB PER DAY
     Route: 048
  4. SINGULAIR [Concomitant]
     Indication: PULMONARY EMBOLISM
     Route: 048

REACTIONS (6)
  - Erectile dysfunction [Not Recovered/Not Resolved]
  - Libido decreased [Not Recovered/Not Resolved]
  - Urinary tract disorder [Not Recovered/Not Resolved]
  - Dry skin [Not Recovered/Not Resolved]
  - Skin papilloma [Not Recovered/Not Resolved]
  - Pruritus [Not Recovered/Not Resolved]
